FAERS Safety Report 8881669 (Version 1)
Quarter: 2012Q4

REPORT INFORMATION
  Report Type: 
  Country: US (occurrence: US)
  Receive Date: 20121101
  Receipt Date: 20121101
  Transmission Date: 20130627
  Serious: No
  Sender: FDA-Public Use
  Company Number: US-PFIZER INC-2012270721

PATIENT
  Age: 69 Year
  Sex: Female
  Weight: 65.76 kg

DRUGS (3)
  1. PROPANOLOL HCL [Suspect]
     Indication: MIGRAINE HEADACHE
     Dosage: 120 mg, UNK
     Route: 048
  2. PROPANOLOL HCL [Suspect]
     Dosage: 120 mg, 1x/day
     Route: 048
  3. LEVOXYL [Concomitant]
     Dosage: UNK

REACTIONS (2)
  - Drug ineffective [Unknown]
  - Drug ineffective [Unknown]
